FAERS Safety Report 4312395-8 (Version None)
Quarter: 2004Q1

REPORT INFORMATION
  Report Type: 
  Country: None (occurrence: None)
  Receive Date: 20040303
  Receipt Date: 20040225
  Transmission Date: 20041129
  Serious: Yes (Other)
  Sender: FDA-Public Use
  Company Number: 2004-02-0273

PATIENT
  Age: 52 Year
  Sex: Male
  Weight: 81.6475 kg

DRUGS (11)
  1. PEG-INTRON [Suspect]
     Indication: HEPATITIS
     Dosage: 150 MCG QWK SUBCUTANEOUS
     Route: 058
     Dates: start: 20030606
  2. REBETOL [Suspect]
     Indication: HEPATITIS C
     Dosage: 600 MG QD, ORAL
     Route: 048
     Dates: start: 20030606
  3. CYCLOSPORINE [Concomitant]
  4. METOPROLOL [Concomitant]
  5. NORVASC [Concomitant]
  6. PREVACID [Concomitant]
  7. MULTI-VITAMINS [Concomitant]
  8. CALCIUM [Concomitant]
  9. ZOLOFT [Concomitant]
  10. AMBIEN [Concomitant]
  11. EPOGEN [Concomitant]

REACTIONS (5)
  - CHEST PAIN [None]
  - CORONARY ARTERY DISEASE [None]
  - ECHOCARDIOGRAM ABNORMAL [None]
  - VASCULAR CALCIFICATION [None]
  - VASCULAR OCCLUSION [None]
